FAERS Safety Report 7602135-9 (Version None)
Quarter: 2011Q3

REPORT INFORMATION
  Report Type: 
  Country: None (occurrence: None)
  Receive Date: 20110711
  Receipt Date: 20110629
  Transmission Date: 20111222
  Serious: Yes (Other)
  Sender: FDA-Public Use
  Company Number: PHHY2011BR29426

PATIENT
  Sex: Male

DRUGS (3)
  1. TEGRETOL [Suspect]
     Dosage: 400 MG, DAILY
  2. TEGRETOL [Suspect]
     Dosage: 300 (UNSPECIFIED UNIT) HALF DOSE TWICE A DAY
  3. TEGRETOL-XR [Suspect]
     Dosage: 400 MG, BID

REACTIONS (5)
  - CONVULSION [None]
  - ROAD TRAFFIC ACCIDENT [None]
  - DRUG INTOLERANCE [None]
  - PETIT MAL EPILEPSY [None]
  - DAYDREAMING [None]
